FAERS Safety Report 7261093-X (Version None)
Quarter: 2011Q1

REPORT INFORMATION
  Report Type: 
  Country: None (occurrence: None)
  Receive Date: 20110130
  Receipt Date: 20101223
  Transmission Date: 20110831
  Serious: No
  Sender: FDA-Public Use
  Company Number: US-ABBOTT-10P-163-0694084-00

PATIENT
  Age: 49 Year
  Sex: Female
  Weight: 49.94 kg

DRUGS (1)
  1. HUMIRA [Suspect]
     Indication: RHEUMATOID ARTHRITIS
     Route: 058
     Dates: start: 20070101

REACTIONS (4)
  - ARTHRALGIA [None]
  - EXPIRED DRUG ADMINISTERED [None]
  - DIARRHOEA [None]
  - HYPERHIDROSIS [None]
